FAERS Safety Report 4855167-8 (Version None)
Quarter: 2005Q4

REPORT INFORMATION
  Report Type: 
  Country: None (occurrence: None)
  Receive Date: 20051215
  Receipt Date: 20050916
  Transmission Date: 20060501
  Serious: Yes (Hospitalization)
  Sender: FDA-Public Use
  Company Number: US-MERCK-0509USA02667

PATIENT
  Age: 71 Year
  Sex: Female
  Weight: 85 kg

DRUGS (7)
  1. VIOXX [Suspect]
     Route: 048
     Dates: start: 20030401, end: 20040801
  2. PROTONIX [Concomitant]
     Route: 065
  3. EVISTA [Concomitant]
     Route: 065
  4. PEPCID [Concomitant]
     Route: 065
  5. ASPIRIN [Concomitant]
     Route: 065
  6. METROGEL [Concomitant]
     Route: 065
  7. HYDROCHLOROTHIAZIDE [Concomitant]
     Route: 065

REACTIONS (4)
  - DIARRHOEA [None]
  - MYOCARDIAL INFARCTION [None]
  - NAUSEA [None]
  - VOMITING [None]
